FAERS Safety Report 5208332-4 (Version None)
Quarter: 2007Q1

REPORT INFORMATION
  Report Type: 
  Country: None (occurrence: None)
  Receive Date: 20070115
  Receipt Date: 20070103
  Transmission Date: 20070707
  Serious: Yes (Hospitalization)
  Sender: FDA-Public Use
  Company Number: GB-BAXTER-2007BH000045

PATIENT
  Age: 12 Year
  Sex: Female

DRUGS (2)
  1. GENTAMICIN GENERIC [Suspect]
     Indication: DRUG USE FOR UNKNOWN INDICATION
     Dosage: DOSE UNIT:UNKNOWN
     Route: 042
  2. CEFTAZIDIME [Suspect]
     Indication: DRUG USE FOR UNKNOWN INDICATION
     Dosage: DOSE UNIT:UNKNOWN
     Route: 042

REACTIONS (4)
  - LUNG TRANSPLANT [None]
  - PERITONEAL DIALYSIS [None]
  - PULMONARY FUNCTION TEST DECREASED [None]
  - RENAL FAILURE ACUTE [None]
